FAERS Safety Report 23155556 (Version 2)
Quarter: 2023Q4

REPORT INFORMATION
  Report Type: Spontaneous
  Country: US (occurrence: US)
  Receive Date: 20231107
  Receipt Date: 20231130
  Transmission Date: 20240110
  Serious: No
  Sender: FDA-Public Use
  Company Number: US-SA-SAC20231030001463

PATIENT
  Age: 54 Year
  Sex: Male

DRUGS (2)
  1. REZUROCK [Suspect]
     Active Substance: BELUMOSUDIL
     Indication: Chronic graft versus host disease
     Dosage: 200 MG, QD
     Route: 048
     Dates: start: 20220620
  2. TAVALISSE [Concomitant]
     Active Substance: FOSTAMATINIB
     Dosage: UNK

REACTIONS (2)
  - Platelet count abnormal [Unknown]
  - Musculoskeletal discomfort [Recovering/Resolving]

NARRATIVE: CASE EVENT DATE: 20231024
